FAERS Safety Report 7757924-7 (Version None)
Quarter: 2011Q3

REPORT INFORMATION
  Report Type: 
  Country: None (occurrence: None)
  Receive Date: 20110919
  Receipt Date: 20110909
  Transmission Date: 20111222
  Serious: Yes (Hospitalization)
  Sender: FDA-Public Use
  Company Number: AR-AMGEN-ARGSP2011044835

PATIENT
  Age: 72 Year
  Sex: Female

DRUGS (3)
  1. DIAMICRON [Concomitant]
     Dosage: UNK
  2. ENBREL [Suspect]
     Indication: RHEUMATOID ARTHRITIS
     Dosage: 50 MG, WEEKLY
     Route: 058
     Dates: start: 20110210
  3. METHOTREXATE [Concomitant]
     Dosage: UNK

REACTIONS (1)
  - ANAEMIA [None]
